FAERS Safety Report 5763721-4 (Version None)
Quarter: 2008Q2

REPORT INFORMATION
  Report Type: 
  Country: None (occurrence: None)
  Receive Date: 20080610
  Receipt Date: 20080605
  Transmission Date: 20081010
  Serious: Yes (Death, Hospitalization)
  Sender: FDA-Public Use
  Company Number: RU-BRISTOL-MYERS SQUIBB COMPANY-13256102

PATIENT
  Age: 53 Year
  Sex: Female

DRUGS (5)
  1. CYCLOPHOSPHAMIDE [Suspect]
     Indication: BREAST CANCER
     Route: 042
     Dates: start: 20051122, end: 20051122
  2. ALIMTA [Suspect]
     Indication: BREAST CANCER
     Route: 042
     Dates: start: 20051122, end: 20051122
  3. FOLIC ACID [Concomitant]
  4. VITAMIN B-12 [Concomitant]
  5. DEXAMETHASONE TAB [Concomitant]

REACTIONS (7)
  - AGRANULOCYTOSIS [None]
  - GASTROINTESTINAL HAEMORRHAGE [None]
  - HEPATITIS TOXIC [None]
  - HEPATORENAL FAILURE [None]
  - LOSS OF CONSCIOUSNESS [None]
  - MULTI-ORGAN FAILURE [None]
  - PNEUMONIA [None]
